FAERS Safety Report 6686123-5 (Version None)
Quarter: 2010Q2

REPORT INFORMATION
  Report Type: 
  Country: None (occurrence: None)
  Receive Date: 20100419
  Receipt Date: 20100414
  Transmission Date: 20101027
  Serious: Yes (Death, Life-Threatening, Hospitalization)
  Sender: FDA-Public Use
  Company Number: US-BRISTOL-MYERS SQUIBB COMPANY-15055452

PATIENT
  Age: 67 Year
  Sex: Female
  Weight: 121 kg

DRUGS (11)
  1. CARBOPLATIN [Suspect]
     Indication: NON-SMALL CELL LUNG CANCER STAGE IIIB
     Dosage: 6DF=6AUC
     Route: 042
     Dates: start: 20100324, end: 20100324
  2. PACLITAXEL [Suspect]
     Indication: NON-SMALL CELL LUNG CANCER STAGE IIIB
     Route: 042
     Dates: start: 20100324, end: 20100324
  3. MORPHINE SULFATE [Suspect]
     Indication: BACK PAIN
  4. DARVOCET-N 100 [Suspect]
     Indication: BACK PAIN
  5. PRILOSEC [Concomitant]
  6. ATENOLOL [Concomitant]
  7. GLIPIZIDE [Concomitant]
  8. NOVOLIN 70/30 [Concomitant]
  9. LASIX [Concomitant]
  10. SIMVASTATIN [Concomitant]
  11. LEVOXYL [Concomitant]

REACTIONS (3)
  - ACCIDENTAL OVERDOSE [None]
  - CARDIO-RESPIRATORY ARREST [None]
  - CONFUSIONAL STATE [None]
